FAERS Safety Report 4485347-5 (Version None)
Quarter: 2004Q3

REPORT INFORMATION
  Report Type: 
  Country: None (occurrence: None)
  Receive Date: 20040921
  Receipt Date: 20040430
  Transmission Date: 20050211
  Serious: Yes (Death, Hospitalization)
  Sender: FDA-Public Use
  Company Number: 163-20785-04050023

PATIENT
  Age: 62 Year
  Sex: Male

DRUGS (12)
  1. THALOMID [Suspect]
     Indication: ACUTE MYELOID LEUKAEMIA
     Dosage: 200 MG, QHS, ORAL; 100 MG, QHS, ORAL
     Route: 048
     Dates: start: 20040217, end: 20040223
  2. THALOMID [Suspect]
     Indication: ACUTE MYELOID LEUKAEMIA
     Dosage: 200 MG, QHS, ORAL; 100 MG, QHS, ORAL
     Route: 048
     Dates: start: 20040224, end: 20040302
  3. VORICONAZOLE (VORICONAZOLE) [Concomitant]
  4. FLAGYL [Concomitant]
  5. CIPROFLOXACIN [Concomitant]
  6. VANCOMYCIN [Concomitant]
  7. PREVACID [Concomitant]
  8. FLOMAX [Concomitant]
  9. MAGNEISUM OXIDE (MAGNESIUM OXIDE) [Concomitant]
  10. LEXAPRO [Concomitant]
  11. PHYTONADIONE [Concomitant]
  12. LOPRESSOR [Concomitant]

REACTIONS (9)
  - BACTERAEMIA [None]
  - DEATH [None]
  - DISEASE PROGRESSION [None]
  - GENERALISED OEDEMA [None]
  - HALLUCINATION, VISUAL [None]
  - INFECTION [None]
  - OEDEMA [None]
  - PANCYTOPENIA [None]
  - RASH [None]
